FAERS Safety Report 12994825 (Version 1)
Quarter: 2016Q4

REPORT INFORMATION
  Report Type: Report from Study
  Country: CN (occurrence: CN)
  Receive Date: 20161202
  Receipt Date: 20161202
  Transmission Date: 20170207
  Serious: Yes (Death, Life-Threatening)
  Sender: FDA-Public Use
  Company Number: CN-PFIZER INC-2016557243

PATIENT

DRUGS (6)
  1. L-ASPARAGINASE [Concomitant]
     Active Substance: ASPARAGINASE
     Indication: T-CELL LYMPHOMA
     Dosage: 6,000 U/M2, DAYS 3-9
  2. IFOSFAMIDE. [Concomitant]
     Active Substance: IFOSFAMIDE
     Indication: T-CELL LYMPHOMA
     Dosage: 1500 MG/M2, (DAYS 2-4 TIMING OF TREATMENT)
     Route: 042
  3. MESNA. [Concomitant]
     Active Substance: MESNA
     Indication: T-CELL LYMPHOMA
     Dosage: 900 MG/M2, (DAYS 2-4 TIMING OF TREATMENT)
     Route: 042
  4. ETOPOSIDE. [Concomitant]
     Active Substance: ETOPOSIDE
     Indication: T-CELL LYMPHOMA
     Dosage: 100 MG/M2, (DAYS 2-4 TIMING OF TREATMENT)
     Route: 042
  5. DEXAMETHASONE. [Concomitant]
     Active Substance: DEXAMETHASONE
     Indication: T-CELL LYMPHOMA
     Dosage: 40 MG/M2, (DAYS 2-4 TIMING OF TREATMENT)
     Route: 042
  6. METHOTREXATE SODIUM. [Suspect]
     Active Substance: METHOTREXATE SODIUM
     Indication: T-CELL LYMPHOMA
     Dosage: 2 G/M2 (DAY 1)
     Route: 042

REACTIONS (1)
  - Mucosal inflammation [Fatal]
